FAERS Safety Report 5217180-0 (Version None)
Quarter: 2007Q1

REPORT INFORMATION
  Report Type: 
  Country: None (occurrence: None)
  Receive Date: 20070123
  Receipt Date: 20070123
  Transmission Date: 20070707
  Serious: Yes (Life-Threatening, Hospitalization)
  Sender: FDA-Public Use
  Company Number: None

PATIENT
  Sex: Female
  Weight: 52 kg

DRUGS (1)
  1. ALTEPLASE 25 MG [Suspect]
     Indication: THROMBOLYSIS
     Dosage: Q24H IV
     Route: 042
     Dates: start: 20070118

REACTIONS (3)
  - HAEMATEMESIS [None]
  - HYPOTENSION [None]
  - RETROPERITONEAL HAEMORRHAGE [None]
